FAERS Safety Report 18417818 (Version 1)
Quarter: 2020Q4

REPORT INFORMATION
  Report Type: Spontaneous
  Country: DE (occurrence: DE)
  Receive Date: 20201022
  Receipt Date: 20201022
  Transmission Date: 20210114
  Serious: Yes (Hospitalization, Other)
  Sender: FDA-Public Use
  Company Number: DE-VELOXIS PHARMACEUTICALS-2020VELDE-000878

PATIENT
  Age: 14 Month
  Sex: Female
  Weight: 7.7 kg

DRUGS (1)
  1. ENVARSUS XR [Suspect]
     Active Substance: TACROLIMUS
     Indication: PROPHYLAXIS AGAINST TRANSPLANT REJECTION

REACTIONS (8)
  - Renal tubular acidosis [Recovered/Resolved]
  - Nephrocalcinosis [Unknown]
  - Acute kidney injury [Recovered/Resolved]
  - Complication associated with device [Recovered/Resolved]
  - Nephrogenic diabetes insipidus [Recovered/Resolved]
  - Toxicity to various agents [Recovered/Resolved]
  - Dehydration [Recovered/Resolved]
  - Product use issue [Unknown]
